FAERS Safety Report 18951598 (Version 3)
Quarter: 2022Q2

REPORT INFORMATION
  Report Type: Spontaneous
  Country: GB (occurrence: GB)
  Receive Date: 20210301
  Receipt Date: 20220413
  Transmission Date: 20220720
  Serious: Yes (Hospitalization)
  Sender: FDA-Public Use
  Company Number: GB-MHRA-EYC 00239963

PATIENT
  Age: 21 Year
  Sex: Female

DRUGS (4)
  1. SERTRALINE [Suspect]
     Active Substance: SERTRALINE HYDROCHLORIDE
     Indication: Negative thoughts
     Dosage: 50
     Route: 048
     Dates: start: 20180505, end: 20201203
  2. ARIPIPRAZOLE [Suspect]
     Active Substance: ARIPIPRAZOLE
     Indication: Schizophrenia
     Dosage: 10
     Route: 048
     Dates: start: 20150505
  3. NEXPLANON [Concomitant]
     Active Substance: ETONOGESTREL
     Indication: Ill-defined disorder
     Dosage: UNK
     Route: 065
  4. RIGEVIDON [Concomitant]
     Indication: Ill-defined disorder
     Dosage: UNK
     Route: 065

REACTIONS (1)
  - Liver function test abnormal [Not Recovered/Not Resolved]

NARRATIVE: CASE EVENT DATE: 20190101
